FAERS Safety Report 19083837 (Version 3)
Quarter: 2021Q2

REPORT INFORMATION
  Report Type: Spontaneous
  Country: US (occurrence: US)
  Receive Date: 20210401
  Receipt Date: 20210528
  Transmission Date: 20210717
  Serious: Yes (Hospitalization, Other)
  Sender: FDA-Public Use
  Company Number: US-CATALYST PHARMACEUTICALS, INC-2021CAT00119

PATIENT
  Age: 72 Year
  Sex: Male
  Weight: 65.67 kg

DRUGS (18)
  1. ASPIRIN. [Concomitant]
     Active Substance: ASPIRIN
     Dosage: 81 MG, 1X/DAY
     Route: 048
  2. CHLORHEXIDINE [Concomitant]
     Active Substance: CHLORHEXIDINE
     Dosage: 200 ML, 3X/DAY FOR ORAL CARE
  3. VITAMIN C [Concomitant]
     Active Substance: ASCORBIC ACID
     Dosage: 500 MG, 2X/DAY
  4. DOCUSATE SODIUM. [Concomitant]
     Active Substance: DOCUSATE SODIUM
     Dosage: 100 MG (30 ML), 1X/DAY
     Route: 048
  5. FIRDAPSE [Suspect]
     Active Substance: AMIFAMPRIDINE PHOSPHATE
     Indication: MYASTHENIC SYNDROME
     Dosage: 20 MG, 3X/DAY VIA PEG TUBE
     Route: 048
     Dates: start: 20200626
  6. BACLOFEN. [Concomitant]
     Active Substance: BACLOFEN
     Dosage: 10 MG, 3X/DAY
     Route: 048
  7. SCOPOLAMINE PATCH [Concomitant]
     Active Substance: SCOPOLAMINE
     Dosage: 1 PATCH, EVERY 72 HOURS PRN
     Route: 061
  8. ELIGEN VITAMIN B12 [Concomitant]
     Dosage: 1000 ?G, 1X/DAY
     Route: 048
  9. ZANTAC [Concomitant]
     Active Substance: RANITIDINE HYDROCHLORIDE
     Dosage: 200 MG, 2X/DAY
  10. POTASSIUM CHLORIDE. [Concomitant]
     Active Substance: POTASSIUM CHLORIDE
     Dosage: 20 MEQ (15 ML), 1X/DAY
     Route: 048
  11. MULTIVITAMIN [Concomitant]
     Active Substance: VITAMINS
     Dosage: UNK, 1X/DAY
  12. LASIX [Concomitant]
     Active Substance: FUROSEMIDE
     Dosage: 40 MG, 1X/DAY
     Route: 048
  13. THIAMINE. [Concomitant]
     Active Substance: THIAMINE
     Dosage: 100 MG, 1X/DAY
     Route: 048
  14. VIMPAT [Concomitant]
     Active Substance: LACOSAMIDE
     Dosage: 200 MG, 2X/DAY
     Route: 048
  15. TYLENOL [Concomitant]
     Active Substance: ACETAMINOPHEN
     Dosage: 650 MG, Q6HR, PRN
     Route: 048
  16. MESTINON [Concomitant]
     Active Substance: PYRIDOSTIGMINE BROMIDE
     Dosage: 90 MG, 4X/DAY
  17. PEPCID [Concomitant]
     Active Substance: FAMOTIDINE
     Dosage: 20 MG, 2X/DAY
     Route: 048
  18. ROBINUL [Concomitant]
     Active Substance: GLYCOPYRROLATE
     Dosage: 1 MG, 3X/DAY
     Route: 048

REACTIONS (21)
  - Unresponsive to stimuli [Recovered/Resolved]
  - Bacteraemia [Recovered/Resolved]
  - Proteus infection [Recovered/Resolved]
  - Hyperkalaemia [Unknown]
  - Dilatation atrial [Not Recovered/Not Resolved]
  - Right ventricular dilatation [Not Recovered/Not Resolved]
  - Sinus bradycardia [Unknown]
  - Haemoglobin decreased [Unknown]
  - Hypoxic-ischaemic encephalopathy [Recovering/Resolving]
  - Seizure [Unknown]
  - Hypernatraemia [Unknown]
  - Respiratory distress [Recovered/Resolved]
  - Pneumonia [Recovered/Resolved]
  - Lung disorder [Unknown]
  - Septic shock [Recovered/Resolved]
  - Acute kidney injury [Recovered/Resolved]
  - Hypotension [Recovered/Resolved]
  - Dehydration [Recovered/Resolved]
  - Dermatophytosis of nail [Unknown]
  - Pulmonary haemorrhage [Unknown]
  - Systolic dysfunction [Not Recovered/Not Resolved]

NARRATIVE: CASE EVENT DATE: 202009
